FAERS Safety Report 6518058-2 (Version None)
Quarter: 2009Q4

REPORT INFORMATION
  Report Type: 
  Country: None (occurrence: None)
  Receive Date: 20091218
  Receipt Date: 20091215
  Transmission Date: 20100525
  Serious: Yes (Death, Hospitalization)
  Sender: FDA-Public Use
  Company Number: 2009SP039366

PATIENT
  Sex: Female

DRUGS (1)
  1. TEMODAL [Suspect]
     Indication: ANAPLASTIC ASTROCYTOMA
     Dosage: 100 MG;QD
     Dates: start: 20091030, end: 20091119

REACTIONS (4)
  - LOWER RESPIRATORY TRACT INFECTION [None]
  - NEUTROPENIA [None]
  - PNEUMONIA [None]
  - PULMONARY OEDEMA [None]
